FAERS Safety Report 19126132 (Version 1)
Quarter: 2021Q2

REPORT INFORMATION
  Report Type: Spontaneous
  Country: US (occurrence: US)
  Receive Date: 20210412
  Receipt Date: 20210412
  Transmission Date: 20210717
  Serious: Yes (Disabling)
  Sender: FDA-Public Use
  Company Number: None

PATIENT
  Age: 56 Year
  Sex: Male
  Weight: 91.8 kg

DRUGS (11)
  1. OXYCODONE ER HCL 40MG [Suspect]
     Active Substance: OXYCODONE HYDROCHLORIDE
     Indication: KNEE OPERATION
     Dosage: ?          QUANTITY:20 TABLET(S);?
     Route: 048
     Dates: start: 20070313, end: 20070913
  2. L4ATUDA 80MG [Concomitant]
  3. MIRTAZAPINE 45MG [Concomitant]
     Active Substance: MIRTAZAPINE
  4. ZINC 400MG [Concomitant]
  5. CALCIUM + VITAMIN D3 [Concomitant]
     Active Substance: CALCIUM\CHOLECALCIFEROL
  6. CLONAZEPAM 1MG [Concomitant]
     Active Substance: CLONAZEPAM
  7. CO Q 10 300MG [Concomitant]
  8. ATORVASTATIN 20MG [Concomitant]
     Active Substance: ATORVASTATIN
  9. FLUOXETINE 40MG [Concomitant]
     Active Substance: FLUOXETINE HYDROCHLORIDE
  10. MAGNESIUM 500MG [Concomitant]
  11. CENTRUM SILVER [Concomitant]
     Active Substance: MINERALS\VITAMINS

REACTIONS (2)
  - Major depression [None]
  - Bipolar disorder [None]

NARRATIVE: CASE EVENT DATE: 20070313
